FAERS Safety Report 6644144-2 (Version None)
Quarter: 2010Q1

REPORT INFORMATION
  Report Type: 
  Country: None (occurrence: None)
  Receive Date: 20100322
  Receipt Date: 20100316
  Transmission Date: 20100710
  Serious: Yes (Death)
  Sender: FDA-Public Use
  Company Number: PHHY2010BE12340

PATIENT
  Sex: Male

DRUGS (1)
  1. CATAFLAM [Suspect]
     Dosage: UNK
     Route: 064

REACTIONS (4)
  - ASPHYXIA [None]
  - DRUG EXPOSURE DURING PREGNANCY [None]
  - INTRA-UTERINE DEATH [None]
  - UMBILICAL CORD AROUND NECK [None]
